FAERS Safety Report 17316162 (Version 1)
Quarter: 2020Q1

REPORT INFORMATION
  Report Type: Spontaneous
  Country: ES (occurrence: ES)
  Receive Date: 20200124
  Receipt Date: 20200124
  Transmission Date: 20200409
  Serious: Yes (Other)
  Sender: FDA-Public Use
  Company Number: ES-MYLANLABS-2020M1007042

PATIENT
  Age: 77 Year
  Sex: Female

DRUGS (10)
  1. PARACETAMOL [Concomitant]
     Active Substance: ACETAMINOPHEN
  2. ESOMEPRAZOL                        /01479301/ [Concomitant]
     Active Substance: ESOMEPRAZOLE
  3. ALLOPURINOL. [Suspect]
     Active Substance: ALLOPURINOL
     Indication: HYPERURICAEMIA
     Dosage: 1 CADA 24 HORAS
     Route: 048
     Dates: start: 20190930, end: 20191031
  4. BALZAK PLUS [Concomitant]
     Active Substance: AMLODIPINE BESYLATE\HYDROCHLOROTHIAZIDE\OLMESARTAN MEDOXOMIL
  5. GANFORT [Concomitant]
     Active Substance: BIMATOPROST\TIMOLOL
     Dosage: UNK
  6. MULTAQ [Concomitant]
     Active Substance: DRONEDARONE
     Dosage: UNK
  7. EUTIROX [Concomitant]
     Active Substance: LEVOTHYROXINE SODIUM
     Dosage: UNK
  8. SINTROM [Concomitant]
     Active Substance: ACENOCOUMAROL
  9. ATENOLOL. [Concomitant]
     Active Substance: ATENOLOL
  10. ATORVASTATINA                      /01326101/ [Concomitant]
     Active Substance: ATORVASTATIN
     Dosage: UNK

REACTIONS (4)
  - Rash [Recovering/Resolving]
  - Pain in extremity [Recovering/Resolving]
  - Oedema [Recovering/Resolving]
  - Pruritus [Recovering/Resolving]

NARRATIVE: CASE EVENT DATE: 20191028
